FAERS Safety Report 10428491 (Version 1)
Quarter: 2014Q3

REPORT INFORMATION
  Report Type: Spontaneous
  Country: CN (occurrence: CN)
  Receive Date: 20140903
  Receipt Date: 20140903
  Transmission Date: 20150326
  Serious: Yes (Other)
  Sender: FDA-Public Use
  Company Number: CN-PFIZER INC-2014243318

PATIENT
  Age: 29 Year
  Sex: Male
  Weight: 50 kg

DRUGS (1)
  1. ZOLOFT [Suspect]
     Active Substance: SERTRALINE HYDROCHLORIDE
     Indication: MENTAL DISORDER
     Dosage: 1 DF, 1X/DAY
     Route: 048
     Dates: start: 20140207

REACTIONS (4)
  - Swelling face [Recovered/Resolved]
  - Pyrexia [Recovered/Resolved]
  - Palpitations [Recovered/Resolved]
  - Erythema [Recovered/Resolved]

NARRATIVE: CASE EVENT DATE: 20140207
